FAERS Safety Report 8770507 (Version 1)
Quarter: 2012Q4

REPORT INFORMATION
  Report Type: 
  Country: DE (occurrence: DE)
  Receive Date: 20120906
  Receipt Date: 20120906
  Transmission Date: 20130627
  Serious: Yes (Other)
  Sender: FDA-Public Use
  Company Number: DE-PFIZER INC-2012214586

PATIENT
  Age: 80 Year
  Sex: Female

DRUGS (1)
  1. TOVIAZ [Suspect]
     Indication: HYPERTONIC BLADDER
     Dosage: 8 mg/day
     Dates: start: 2012

REACTIONS (4)
  - Gait disturbance [Unknown]
  - Drug effect decreased [Unknown]
  - Somnolence [Unknown]
  - Fatigue [Unknown]
